FAERS Safety Report 13886851 (Version 1)
Quarter: 2017Q3

REPORT INFORMATION
  Report Type: Spontaneous
  Country: US (occurrence: US)
  Receive Date: 20170821
  Receipt Date: 20170821
  Transmission Date: 20171127
  Serious: Yes (Other)
  Sender: FDA-Public Use
  Company Number: US-ROCHE-1077060

PATIENT
  Age: 47 Year
  Sex: Male

DRUGS (13)
  1. CYMBALTA [Concomitant]
     Active Substance: DULOXETINE HYDROCHLORIDE
  2. VOLTAREN [Concomitant]
     Active Substance: DICLOFENAC SODIUM
  3. SENOKOT [Concomitant]
     Active Substance: SENNOSIDES
  4. ACTEMRA [Suspect]
     Active Substance: TOCILIZUMAB
     Indication: RHEUMATOID ARTHRITIS
     Route: 042
  5. LYRICA [Concomitant]
     Active Substance: PREGABALIN
  6. MTX [Concomitant]
     Active Substance: METHOTREXATE SODIUM
  7. VITAMIN D [Concomitant]
     Active Substance: CHOLECALCIFEROL
  8. ASPIRIN. [Concomitant]
     Active Substance: ASPIRIN
  9. CALCIUM [Concomitant]
     Active Substance: CALCIUM
  10. PREDNISONE. [Concomitant]
     Active Substance: PREDNISONE
  11. FOLIC ACID. [Concomitant]
     Active Substance: FOLIC ACID
  12. AMBIEN [Concomitant]
     Active Substance: ZOLPIDEM TARTRATE
  13. OXICODONA [Concomitant]
     Dosage: REPORTED AS OXICODONE
     Route: 065

REACTIONS (1)
  - Gastrointestinal perforation [Unknown]

NARRATIVE: CASE EVENT DATE: 20120115
